FAERS Safety Report 5530692-5 (Version None)
Quarter: 2007Q4

REPORT INFORMATION
  Report Type: 
  Country: None (occurrence: None)
  Receive Date: 20071128
  Receipt Date: 20071128
  Transmission Date: 20080405
  Serious: Yes (Hospitalization)
  Sender: FDA-Public Use
  Company Number: None

PATIENT
  Age: 42 Year
  Sex: Male
  Weight: 96.8 kg

DRUGS (5)
  1. GEMCITABINE [Suspect]
     Indication: HODGKIN'S DISEASE
     Dosage: 2040 MG ONCE IV
     Route: 042
     Dates: start: 20071002
  2. NAVELBINE [Suspect]
     Indication: HODGKIN'S DISEASE
     Dosage: 50 MG ONCE IV
     Route: 042
     Dates: start: 20071002
  3. COMPAZINE [Concomitant]
  4. ATIVAN [Concomitant]
  5. CLARITHROMYCIN [Concomitant]

REACTIONS (1)
  - SYNCOPE [None]
